FAERS Safety Report 5970576-1 (Version None)
Quarter: 2008Q4

REPORT INFORMATION
  Report Type: 
  Country: None (occurrence: None)
  Receive Date: 20081126
  Receipt Date: 20081030
  Transmission Date: 20090506
  Serious: No
  Sender: FDA-Public Use
  Company Number: US-ABBOTT-08P-163-0485426-00

PATIENT

DRUGS (1)
  1. SIMCOR [Suspect]
     Indication: BLOOD CHOLESTEROL INCREASED
     Dosage: 500/20 MG X2 AT BEDTIME

REACTIONS (7)
  - DIARRHOEA [None]
  - ERYTHEMA [None]
  - FLATULENCE [None]
  - FLUSHING [None]
  - HEADACHE [None]
  - NAUSEA [None]
  - SKIN BURNING SENSATION [None]
